FAERS Safety Report 18207049 (Version 1)
Quarter: 2020Q3

REPORT INFORMATION
  Report Type: Spontaneous
  Country: NL (occurrence: NL)
  Receive Date: 20200828
  Receipt Date: 20200828
  Transmission Date: 20201103
  Serious: Yes (Death)
  Sender: FDA-Public Use
  Company Number: NL-MYLANLABS-2020M1075063

PATIENT
  Age: 66 Year
  Sex: Female

DRUGS (3)
  1. CALCI CHEW [Concomitant]
     Dosage: 1 KEER PER DAG 1 STUK(S)
     Route: 048
     Dates: start: 20040318
  2. ITRACONAZOLE. [Suspect]
     Active Substance: ITRACONAZOLE
     Indication: ONYCHOMYCOSIS
     Dosage: 1 KEER PER DAG 1 STUK(S)
     Route: 048
     Dates: start: 20130515, end: 20130609
  3. PROTELOS [Concomitant]
     Active Substance: STRONTIUM RANELATE
     Dosage: 1 KEER PER DAG 1 STUK(S)
     Route: 048
     Dates: start: 20090518

REACTIONS (1)
  - Cerebral haemorrhage [Fatal]

NARRATIVE: CASE EVENT DATE: 20130609
